FAERS Safety Report 13904146 (Version 1)
Quarter: 2017Q3

REPORT INFORMATION
  Report Type: Spontaneous
  Country: US (occurrence: US)
  Receive Date: 20170825
  Receipt Date: 20170825
  Transmission Date: 20171127
  Serious: No
  Sender: FDA-Public Use
  Company Number: US-CELGENEUS-USA-2017030097

PATIENT
  Sex: Female
  Weight: 65.38 kg

DRUGS (2)
  1. REVLIMID [Suspect]
     Active Substance: LENALIDOMIDE
     Indication: PLASMA CELL MYELOMA
     Dosage: 5 MILLIGRAM
     Route: 048
     Dates: start: 20160702
  2. DEXAMETHASONE. [Suspect]
     Active Substance: DEXAMETHASONE
     Indication: PRODUCT USED FOR UNKNOWN INDICATION
     Route: 065

REACTIONS (7)
  - Dizziness [Unknown]
  - Paraesthesia [Unknown]
  - Muscle tightness [Unknown]
  - Muscle spasms [Not Recovered/Not Resolved]
  - Diarrhoea [Unknown]
  - Hypoaesthesia [Not Recovered/Not Resolved]
  - Asthenia [Unknown]
